FAERS Safety Report 5207012-9 (Version None)
Quarter: 2007Q1

REPORT INFORMATION
  Report Type: 
  Country: None (occurrence: None)
  Receive Date: 20070112
  Receipt Date: 20070105
  Transmission Date: 20070707
  Serious: Yes (Hospitalization)
  Sender: FDA-Public Use
  Company Number: CA-BAYER-200710165GDS

PATIENT
  Age: 60 Year
  Sex: Male
  Weight: 61 kg

DRUGS (15)
  1. SORAFENIB [Suspect]
     Indication: NON-SMALL CELL LUNG CANCER
     Dosage: TOTAL DAILY DOSE: 800 MG
     Route: 048
     Dates: start: 20060929, end: 20070105
  2. CARBOPLATIN [Suspect]
     Indication: NON-SMALL CELL LUNG CANCER
     Route: 065
  3. PACLITAXEL [Suspect]
     Indication: NON-SMALL CELL LUNG CANCER
     Route: 065
  4. DIOVAN [Concomitant]
     Indication: HYPERTENSION
     Route: 048
     Dates: start: 20060924
  5. APO-CEPHALEX [Concomitant]
     Indication: ILL-DEFINED DISORDER
     Dosage: TOTAL DAILY DOSE: 2000 MG
     Route: 048
     Dates: start: 20061116, end: 20061123
  6. ACETAMINOPHEN AND OXYCODONE HCL [Concomitant]
     Indication: ANALGESIC EFFECT
     Route: 048
     Dates: start: 20061107
  7. PREDNISONE TAB [Concomitant]
     Indication: DRUG USE FOR UNKNOWN INDICATION
     Dosage: UNIT DOSE: 50 MG
     Route: 048
     Dates: start: 20061108, end: 20061109
  8. SENOKOT [Concomitant]
     Indication: CONSTIPATION PROPHYLAXIS
     Route: 048
     Dates: start: 20061010
  9. APO-MEGESTROL [Concomitant]
     Indication: DECREASED APPETITE
     Dosage: TOTAL DAILY DOSE: 480 MG
     Route: 048
     Dates: start: 20061201
  10. PHENAZO [Concomitant]
     Indication: PROSTATIC DISORDER
     Route: 048
     Dates: start: 20060910, end: 20061013
  11. CAP AVODART [Concomitant]
     Indication: PROSTATE EXAMINATION ABNORMAL
     Route: 048
     Dates: start: 20060916
  12. XATRAL [Concomitant]
     Indication: PROSTATE EXAMINATION ABNORMAL
     Route: 048
     Dates: start: 20060916
  13. APO-PROCHLORAZINE [Concomitant]
     Indication: NAUSEA
     Route: 048
     Dates: start: 20061113
  14. TRAMACET [Concomitant]
     Indication: PROSTATE EXAMINATION ABNORMAL
     Route: 048
     Dates: start: 20060912, end: 20060915
  15. HYCODAN [Concomitant]
     Indication: COUGH
     Route: 048
     Dates: start: 20060816, end: 20060830

REACTIONS (1)
  - DEEP VEIN THROMBOSIS [None]
